FAERS Safety Report 5917155-X (Version None)
Quarter: 2008Q4

REPORT INFORMATION
  Report Type: 
  Country: None (occurrence: None)
  Receive Date: 20081010
  Receipt Date: 20081010
  Transmission Date: 20090506
  Serious: Yes (Hospitalization)
  Sender: FDA-Public Use
  Company Number: None

PATIENT
  Sex: Male
  Weight: 50 kg

DRUGS (1)
  1. CYCLOSPORINE [Suspect]
     Indication: NEPHROTIC SYNDROME
     Dosage: 100MG BID PO
     Route: 048

REACTIONS (1)
  - NEPHROTIC SYNDROME [None]
